FAERS Safety Report 16066397 (Version 1)
Quarter: 2019Q2

REPORT INFORMATION
  Report Type: Spontaneous
  Country: US (occurrence: US)
  Receive Date: 20190312
  Receipt Date: 20190312
  Transmission Date: 20190711
  Serious: Yes (Hospitalization)
  Sender: FDA-Public Use
  Company Number: None

PATIENT
  Sex: Female

DRUGS (3)
  1. HUMIRA [Suspect]
     Active Substance: ADALIMUMAB
     Indication: RHEUMATOID ARTHRITIS
     Dosage: ?          OTHER FREQUENCY:EVERY WEEK;?
     Route: 058
     Dates: start: 20080505
  2. PRILOSEC, PENTASA, ALLOPURINOL, VIT D [Concomitant]
  3. PEPCID, OXYCOD/APAP [Concomitant]

REACTIONS (3)
  - Therapy cessation [None]
  - Nasopharyngitis [None]
  - Condition aggravated [None]
